FAERS Safety Report 11088261 (Version 1)
Quarter: 2015Q2

REPORT INFORMATION
  Report Type: Spontaneous
  Country: BR (occurrence: BR)
  Receive Date: 20150504
  Receipt Date: 20150504
  Transmission Date: 20150821
  Serious: Yes (Death)
  Sender: FDA-Public Use
  Company Number: BR-ASTRAZENECA-2015SE40735

PATIENT
  Sex: Female

DRUGS (9)
  1. ZYLORIC [Concomitant]
     Active Substance: ALLOPURINOL
  2. RASILEZ HCT [Concomitant]
     Active Substance: ALISKIREN\HYDROCHLOROTHIAZIDE
  3. ATACAND [Suspect]
     Active Substance: CANDESARTAN CILEXETIL
     Route: 048
     Dates: start: 201008
  4. LASIX [Concomitant]
     Active Substance: FUROSEMIDE
     Dosage: TWO TIMES A DAY
     Dates: start: 201008
  5. SELOZOK [Suspect]
     Active Substance: METOPROLOL SUCCINATE
     Route: 048
  6. HYDRALAZINE [Concomitant]
     Active Substance: HYDRALAZINE HYDROCHLORIDE
     Dosage: TWO TIMES A DAY
  7. RASILEZ [Concomitant]
     Active Substance: ALISKIREN
     Indication: HYPERTENSION
     Route: 048
  8. ANCORON [Concomitant]
     Active Substance: AMIODARONE HYDROCHLORIDE
  9. RASILEZ [Concomitant]
     Active Substance: ALISKIREN
     Indication: HYPERTENSION
     Dosage: 300/10 MG DAILY
     Route: 048
     Dates: start: 201008

REACTIONS (2)
  - Malaise [Fatal]
  - Myocardial infarction [Fatal]

NARRATIVE: CASE EVENT DATE: 2011
